FAERS Safety Report 13187493 (Version 1)
Quarter: 2017Q1

REPORT INFORMATION
  Report Type: Spontaneous
  Country: US (occurrence: US)
  Receive Date: 20170206
  Receipt Date: 20170206
  Transmission Date: 20170428
  Serious: No
  Sender: FDA-Public Use
  Company Number: US-PFIZER INC-2016501549

PATIENT
  Age: 93 Year
  Sex: Male
  Weight: 78.46 kg

DRUGS (5)
  1. IBRANCE [Suspect]
     Active Substance: PALBOCICLIB
     Indication: SARCOMA
     Dosage: 75 MG, CYCLIC (DAILY FOR 21 DAYS FOLLOWED BY 7 DAYS OFF REPEAT CYCLE)
     Route: 048
     Dates: start: 201610
  2. SIMVASTATIN. [Concomitant]
     Active Substance: SIMVASTATIN
     Dosage: 80 MG, DAILY
  3. TRIAMTERENE AND HYDROCHLOROTHIAZIDE [Concomitant]
     Active Substance: HYDROCHLOROTHIAZIDE\TRIAMTERENE
     Dosage: 1 DF, DAILY, [HYDROCHLOROTHIAZIDE 37.5 MG]/[TRIAMTERENE 25 MG]
     Route: 048
  4. ALLOPURINOL. [Concomitant]
     Active Substance: ALLOPURINOL
     Dosage: 100 MG, DAILY
     Route: 048
  5. IBRANCE [Suspect]
     Active Substance: PALBOCICLIB
     Indication: DERMATOFIBROSARCOMA PROTUBERANS

REACTIONS (5)
  - Arthritis [Unknown]
  - Product use issue [Unknown]
  - Restless legs syndrome [Unknown]
  - Neoplasm progression [Unknown]
  - Musculoskeletal stiffness [Unknown]

NARRATIVE: CASE EVENT DATE: 201610
